FAERS Safety Report 7866847-4 (Version None)
Quarter: 2011Q4

REPORT INFORMATION
  Report Type: 
  Country: None (occurrence: None)
  Receive Date: 20111028
  Receipt Date: 20111020
  Transmission Date: 20120403
  Serious: Yes (Hospitalization)
  Sender: FDA-Public Use
  Company Number: US-ALLERGAN-1113926US

PATIENT
  Age: 70 Year
  Sex: Female

DRUGS (1)
  1. BOTULINUM TOXIN TYPE A [Suspect]
     Indication: VOCAL CORD DISORDER
     Dosage: UNK
     Route: 030
     Dates: start: 20110822, end: 20110822

REACTIONS (4)
  - DYSPHAGIA [None]
  - DEHYDRATION [None]
  - COUGH [None]
  - WEIGHT DECREASED [None]
